FAERS Safety Report 7706259-7 (Version None)
Quarter: 2011Q3

REPORT INFORMATION
  Report Type: 
  Country: None (occurrence: None)
  Receive Date: 20110824
  Receipt Date: 20110821
  Transmission Date: 20111222
  Serious: Yes (Other)
  Sender: FDA-Public Use
  Company Number: EG-ROCHE-797872

PATIENT
  Age: 58 Year
  Sex: Male

DRUGS (2)
  1. RIBAVIRIN [Suspect]
     Indication: HEPATITIS C
     Dosage: DAILY
     Route: 048
     Dates: end: 20100201
  2. PEGASYS [Suspect]
     Indication: HEPATITIS C
     Route: 058
     Dates: end: 20100201

REACTIONS (5)
  - PROCTITIS [None]
  - RECTAL TENESMUS [None]
  - RECTAL PROLAPSE [None]
  - RECTAL HAEMORRHAGE [None]
  - CONSTIPATION [None]
